FAERS Safety Report 20416744 (Version 1)
Quarter: 2022Q1

REPORT INFORMATION
  Report Type: Spontaneous
  Country: US (occurrence: US)
  Receive Date: 20220202
  Receipt Date: 20220202
  Transmission Date: 20220424
  Serious: Yes (Other)
  Sender: FDA-Public Use
  Company Number: US-Accord-252028

PATIENT
  Sex: Female
  Weight: 113.40 kg

DRUGS (1)
  1. ESCITALOPRAM OXALATE [Suspect]
     Active Substance: ESCITALOPRAM OXALATE
     Indication: Anxiety
     Dosage: 30MG ONCE A DAY
     Route: 048
     Dates: start: 20220111

REACTIONS (1)
  - Coeliac disease [Not Recovered/Not Resolved]
